FAERS Safety Report 8178715-1 (Version None)
Quarter: 2012Q1

REPORT INFORMATION
  Report Type: 
  Country: None (occurrence: None)
  Receive Date: 20120301
  Receipt Date: 20120301
  Transmission Date: 20120608
  Serious: Yes (Other)
  Sender: FDA-Public Use
  Company Number: None

PATIENT
  Sex: Female
  Weight: 86.182 kg

DRUGS (1)
  1. VENLAFAXINE [Suspect]
     Indication: DEPRESSION
     Dosage: 75MG
     Route: 048
     Dates: start: 20070517, end: 20120229

REACTIONS (7)
  - SUICIDAL IDEATION [None]
  - DIZZINESS [None]
  - HALLUCINATION, AUDITORY [None]
  - VOMITING [None]
  - NAUSEA [None]
  - AGITATION [None]
  - HOMICIDAL IDEATION [None]
